FAERS Safety Report 6923237-6 (Version None)
Quarter: 2010Q3

REPORT INFORMATION
  Report Type: 
  Country: None (occurrence: None)
  Receive Date: 20100813
  Receipt Date: 20100802
  Transmission Date: 20110219
  Serious: Yes (Hospitalization)
  Sender: FDA-Public Use
  Company Number: US-PFIZER INC-2010097803

PATIENT
  Age: 52 Year
  Sex: Female

DRUGS (7)
  1. DILTIAZEM HCL [Interacting]
     Dosage: 180 MG, ONCE
     Route: 065
  2. NIFEDIPINE [Suspect]
     Dosage: 60 MG, ONCE
     Route: 065
  3. METOPROLOL [Interacting]
     Dosage: 200 MG, 2X/DAY
     Route: 065
  4. CLONIDINE [Interacting]
     Dosage: 0.2 MG, 3X/DAY
     Route: 065
  5. HYDRALAZINE [Suspect]
     Dosage: 10 MG, 3X/DAY
     Route: 065
  6. LABETALOL [Interacting]
     Dosage: 20 MG, ONCE
     Route: 042
  7. GALENIC /LOPINAVIR/RITONAVIR/ [Suspect]
     Dosage: 200/50MG, 2X/DAY
     Route: 065

REACTIONS (3)
  - ATRIOVENTRICULAR BLOCK FIRST DEGREE [None]
  - DRUG INTERACTION [None]
  - HYPOTENSION [None]
